APPROVED DRUG PRODUCT: TETRACYN
Active Ingredient: TETRACYCLINE HYDROCHLORIDE
Strength: 500MG
Dosage Form/Route: CAPSULE;ORAL
Application: A060082 | Product #004
Applicant: PFIPHARMECS DIV PFIZER INC
Approved: Approved Prior to Jan 1, 1982 | RLD: No | RS: No | Type: DISCN